FAERS Safety Report 13170619 (Version 2)
Quarter: 2017Q1

REPORT INFORMATION
  Report Type: Report from Study
  Country: ES (occurrence: ES)
  Receive Date: 20170201
  Receipt Date: 20170207
  Transmission Date: 20170428
  Serious: Yes (Other)
  Sender: FDA-Public Use
  Company Number: ES-ROCHE-1887516

PATIENT
  Sex: Female

DRUGS (3)
  1. SINTRON (INGREDIENTS UNKNOWN) [Concomitant]
  2. PRADAXA [Concomitant]
     Active Substance: DABIGATRAN ETEXILATE MESYLATE
  3. TOCILIZUMAB [Suspect]
     Active Substance: TOCILIZUMAB
     Indication: RHEUMATOID ARTHRITIS
     Route: 065
     Dates: start: 20120224

REACTIONS (2)
  - Peripheral ischaemia [Recovered/Resolved with Sequelae]
  - Peripheral embolism [Not Recovered/Not Resolved]

NARRATIVE: CASE EVENT DATE: 20160826
